FAERS Safety Report 11401047 (Version 4)
Quarter: 2015Q3

REPORT INFORMATION
  Report Type: Report from Study
  Country: DE (occurrence: DE)
  Receive Date: 20150820
  Receipt Date: 20150910
  Transmission Date: 20151125
  Serious: Yes (Death, Hospitalization)
  Sender: FDA-Public Use
  Company Number: DE-TAKEDA-2015MPI005500

PATIENT

DRUGS (3)
  1. DEXAMETHASONE. [Suspect]
     Active Substance: DEXAMETHASONE
     Indication: PLASMA CELL MYELOMA
     Dosage: 20 MG, UNK
     Route: 048
     Dates: start: 20150717, end: 20150725
  2. VELCADE [Suspect]
     Active Substance: BORTEZOMIB
     Indication: PLASMA CELL MYELOMA
     Dosage: 2.6 MG, UNK
     Route: 042
     Dates: start: 20150717, end: 20150724
  3. DARATUMUMAB [Suspect]
     Active Substance: DARATUMUMAB
     Indication: PLASMA CELL MYELOMA
     Dosage: 1456 MG, UNK
     Route: 042
     Dates: start: 20150717, end: 20150724

REACTIONS (4)
  - Hypercalcaemia [Recovered/Resolved]
  - Blood creatinine increased [Recovered/Resolved]
  - Pulmonary haemorrhage [Fatal]
  - Epistaxis [Recovered/Resolved]

NARRATIVE: CASE EVENT DATE: 20150805
